FAERS Safety Report 21681471 (Version 2)
Quarter: 2023Q1

REPORT INFORMATION
  Report Type: Report from Study
  Country: FR (occurrence: FR)
  Receive Date: 20221205
  Receipt Date: 20230116
  Transmission Date: 20230418
  Serious: Yes (Death)
  Sender: FDA-Public Use
  Company Number: FR-GLAXOSMITHKLINE-FR2022EME180537

PATIENT

DRUGS (2)
  1. ALBUTEROL SULFATE [Suspect]
     Active Substance: ALBUTEROL SULFATE
     Indication: Congenital myasthenic syndrome
     Dosage: 2 MG/ 5 ML
  2. ALBUTEROL SULFATE [Suspect]
     Active Substance: ALBUTEROL SULFATE
     Indication: Neuromyopathy
     Dosage: 0.6 MG, TID
     Route: 048
     Dates: start: 20210216, end: 20211208

REACTIONS (2)
  - Pulmonary function test decreased [Fatal]
  - General physical health deterioration [Fatal]
